FAERS Safety Report 5028601-0 (Version None)
Quarter: 2006Q2

REPORT INFORMATION
  Report Type: 
  Country: None (occurrence: None)
  Receive Date: 20060615
  Receipt Date: 20060615
  Transmission Date: 20061013
  Serious: Yes (Life-Threatening, Hospitalization)
  Sender: FDA-Public Use
  Company Number: None

PATIENT
  Age: 52 Year
  Sex: Female
  Weight: 56 kg

DRUGS (2)
  1. LANTUS [Suspect]
     Indication: DIABETES MELLITUS
     Dosage: 15 UNITS SC AT BEDTIME
     Route: 058
  2. LISINOPRIL [Concomitant]

REACTIONS (3)
  - HYPOGLYCAEMIA [None]
  - HYPOTHERMIA [None]
  - TREATMENT NONCOMPLIANCE [None]
